FAERS Safety Report 5278420-5 (Version None)
Quarter: 2007Q1

REPORT INFORMATION
  Report Type: 
  Country: None (occurrence: None)
  Receive Date: 20070328
  Receipt Date: 20070323
  Transmission Date: 20070707
  Serious: Yes (Hospitalization)
  Sender: FDA-Public Use
  Company Number: US-BRISTOL-MYERS SQUIBB COMPANY-13725726

PATIENT
  Age: 55 Year
  Sex: Female
  Weight: 63 kg

DRUGS (17)
  1. BARACLUDE [Suspect]
     Indication: HEPATITIS B
     Dates: start: 20060301
  2. WELCHOL [Concomitant]
     Dates: start: 20060501
  3. ZOLOFT [Concomitant]
  4. UNISOM [Concomitant]
  5. LUNESTA [Concomitant]
  6. AMBIEN CR [Concomitant]
  7. VITAMIN E [Concomitant]
  8. ASCORBIC ACID [Concomitant]
  9. VITAMIN K [Concomitant]
  10. LUTEIN [Concomitant]
  11. ANDREW LESSMAN HEALTHY HAIR SKIN NAILS [Concomitant]
  12. MELATONIN [Concomitant]
  13. MILK THISTLE [Concomitant]
  14. GINKGO BILOBA [Concomitant]
  15. ALPHA-LIPOIC ACID [Concomitant]
  16. VITAMIN B COMPLEX CAP [Concomitant]
  17. DIGESTIVE ENZYMES [Concomitant]

REACTIONS (6)
  - ABDOMINAL PAIN [None]
  - DEHYDRATION [None]
  - DIARRHOEA [None]
  - ERUCTATION [None]
  - NAUSEA [None]
  - VOMITING [None]
